FAERS Safety Report 14549332 (Version 2)
Quarter: 2019Q1

REPORT INFORMATION
  Report Type: Spontaneous
  Country: US (occurrence: US)
  Receive Date: 20180219
  Receipt Date: 20190218
  Transmission Date: 20190417
  Serious: Yes (Hospitalization)
  Sender: FDA-Public Use
  Company Number: US-UNICHEM PHARMACEUTICALS (USA) INC-UCM201802-000033

PATIENT
  Age: 56 Year
  Sex: Female
  Weight: 58 kg

DRUGS (15)
  1. TOPIRAMATE 200 MG TABLETS [Suspect]
     Active Substance: TOPIRAMATE
  2. METHENAMINE [Concomitant]
     Active Substance: METHENAMINE
  3. PHENOBARBITAL. [Suspect]
     Active Substance: PHENOBARBITAL
  4. PHENOBARBITAL. [Suspect]
     Active Substance: PHENOBARBITAL
  5. LEVETIRACETAM. [Concomitant]
     Active Substance: LEVETIRACETAM
  6. TOPIRAMATE 200 MG TABLETS [Suspect]
     Active Substance: TOPIRAMATE
     Dates: start: 201412
  7. VITAMIN D [Concomitant]
     Active Substance: CHOLECALCIFEROL
  8. TOPIRAMATE 200 MG TABLETS [Suspect]
     Active Substance: TOPIRAMATE
     Indication: SEIZURE
  9. PHENOBARBITAL. [Suspect]
     Active Substance: PHENOBARBITAL
  10. TOPIRAMATE 200 MG TABLETS [Suspect]
     Active Substance: TOPIRAMATE
  11. CALCIUM CARBONATE. [Concomitant]
     Active Substance: CALCIUM CARBONATE
  12. LEVETIRACETAM. [Concomitant]
     Active Substance: LEVETIRACETAM
  13. POLYETHYLENE GLYCOL [Concomitant]
     Active Substance: POLYETHYLENE GLYCOLS
  14. LEVOTHYROXINE. [Concomitant]
     Active Substance: LEVOTHYROXINE
  15. MAGNESIUM [Concomitant]
     Active Substance: MAGNESIUM
     Dosage: 1000 MG/5 ML

REACTIONS (3)
  - Hypothermia [Recovered/Resolved]
  - Hyperammonaemia [Recovered/Resolved]
  - Drug interaction [Unknown]
